FAERS Safety Report 7806344-5 (Version None)
Quarter: 2011Q4

REPORT INFORMATION
  Report Type: 
  Country: None (occurrence: None)
  Receive Date: 20111011
  Receipt Date: 20111007
  Transmission Date: 20120403
  Serious: Yes (Death, Hospitalization)
  Sender: FDA-Public Use
  Company Number: MX-SANOFI-AVENTIS-2011SA066049

PATIENT
  Age: 75 Year
  Sex: Male

DRUGS (2)
  1. ALFUZOSIN HCL [Suspect]
     Route: 048
     Dates: start: 20070101, end: 20110901
  2. CAPTOPRIL [Concomitant]
     Route: 048
     Dates: end: 20110901

REACTIONS (7)
  - PYREXIA [None]
  - DYSPNOEA [None]
  - SEPTIC SHOCK [None]
  - PNEUMONIA BACTERIAL [None]
  - SPUTUM PURULENT [None]
  - CYANOSIS [None]
  - PLEURITIC PAIN [None]
